FAERS Safety Report 6580725-2 (Version None)
Quarter: 2010Q1

REPORT INFORMATION
  Report Type: 
  Country: None (occurrence: None)
  Receive Date: 20100212
  Receipt Date: 20100204
  Transmission Date: 20100710
  Serious: Yes (Death, Hospitalization)
  Sender: FDA-Public Use
  Company Number: GB-ABBOTT-06P-167-0326347-00

PATIENT
  Sex: Female
  Weight: 65 kg

DRUGS (9)
  1. HUMIRA [Suspect]
     Indication: RHEUMATOID ARTHRITIS
     Route: 058
     Dates: start: 20050401, end: 20061201
  2. ARAVA [Suspect]
     Indication: RHEUMATOID ARTHRITIS
     Route: 048
     Dates: start: 20050401, end: 20061201
  3. ALENDRONATE SODIUM [Concomitant]
     Indication: DRUG USE FOR UNKNOWN INDICATION
  4. CALCICHEW [Concomitant]
     Indication: DRUG USE FOR UNKNOWN INDICATION
  5. IBUPROFEN [Concomitant]
     Indication: RHEUMATOID ARTHRITIS
     Dates: start: 20051201
  6. LISINOPRIL [Concomitant]
     Indication: DRUG USE FOR UNKNOWN INDICATION
  7. RANITIDINE [Concomitant]
     Indication: DRUG USE FOR UNKNOWN INDICATION
  8. BISOPROLOL [Concomitant]
     Indication: HYPOTENSION
     Route: 048
     Dates: start: 20051201
  9. AMLODIPINE [Concomitant]
     Indication: HYPOTENSION
     Route: 048
     Dates: start: 20051201

REACTIONS (3)
  - LUNG ABSCESS [None]
  - PNEUMONIA [None]
  - SEPSIS [None]
